FAERS Safety Report 5195882-2 (Version None)
Quarter: 2006Q4

REPORT INFORMATION
  Report Type: 
  Country: None (occurrence: None)
  Receive Date: 20061227
  Receipt Date: 20061211
  Transmission Date: 20070319
  Serious: Yes (Hospitalization)
  Sender: FDA-Public Use
  Company Number: CERZ-11424

PATIENT
  Age: 77 Year
  Sex: Female
  Weight: 57.2 kg

DRUGS (1)
  1. CEREZYME [Suspect]
     Indication: GAUCHER'S DISEASE
     Dosage: 60 U/KG Q2WKS IV
     Route: 042
     Dates: start: 20051019

REACTIONS (3)
  - FALL [None]
  - FEMUR FRACTURE [None]
  - HYPERLIPIDAEMIA [None]
